FAERS Safety Report 8172234-4 (Version None)
Quarter: 2012Q1

REPORT INFORMATION
  Report Type: 
  Country: None (occurrence: None)
  Receive Date: 20120229
  Receipt Date: 20120224
  Transmission Date: 20120608
  Serious: Yes (Death, Hospitalization)
  Sender: FDA-Public Use
  Company Number: BR-BRISTOL-MYERS SQUIBB COMPANY-16399040

PATIENT
  Age: 67 Year
  Sex: Male

DRUGS (3)
  1. IPILIMUMAB [Suspect]
     Indication: MALIGNANT MELANOMA
     Route: 042
     Dates: start: 20120126
  2. DEXAMETHASONE [Concomitant]
  3. IMIPENEM [Concomitant]

REACTIONS (2)
  - DEATH [None]
  - PYREXIA [None]
